FAERS Safety Report 9124288 (Version 3)
Quarter: 2013Q2

REPORT INFORMATION
  Report Type: Spontaneous
  Country: US (occurrence: US)
  Receive Date: 20130227
  Receipt Date: 20130502
  Transmission Date: 20140414
  Serious: Yes (Other)
  Sender: FDA-Public Use
  Company Number: PHEH2013US004623

PATIENT
  Sex: Male

DRUGS (3)
  1. EXELON PATCH [Suspect]
     Dosage: 9.5 MG, UNK
     Route: 062
  2. ZOLOFT [Concomitant]
     Dosage: UNK UKN, UNK
  3. MULTI-VITAMINS [Concomitant]
     Dosage: UNK UKN, UNK

REACTIONS (3)
  - Dementia [Unknown]
  - Amnesia [Unknown]
  - Drug ineffective [Unknown]
